FAERS Safety Report 6150391-9 (Version None)
Quarter: 2009Q2

REPORT INFORMATION
  Report Type: 
  Country: None (occurrence: None)
  Receive Date: 20090408
  Receipt Date: 20090408
  Transmission Date: 20091009
  Serious: No
  Sender: FDA-Public Use
  Company Number: None

PATIENT
  Age: 46 Year
  Sex: Male
  Weight: 104.6 kg

DRUGS (1)
  1. VARENICLINE [Suspect]
     Indication: SMOKING CESSATION THERAPY
     Dates: start: 20081107, end: 20081207

REACTIONS (6)
  - AGITATION [None]
  - ANGER [None]
  - IRRITABILITY [None]
  - MOOD ALTERED [None]
  - STRESS [None]
  - TREATMENT NONCOMPLIANCE [None]
